FAERS Safety Report 14771100 (Version 1)
Quarter: 2018Q2

REPORT INFORMATION
  Report Type: Spontaneous
  Country: US (occurrence: US)
  Receive Date: 20180417
  Receipt Date: 20180417
  Transmission Date: 20180711
  Serious: No
  Sender: FDA-Public Use
  Company Number: US-ALLERGAN-1805849US

PATIENT
  Sex: Female
  Weight: 70.3 kg

DRUGS (2)
  1. LATISSE [Suspect]
     Active Substance: BIMATOPROST
     Dosage: 2 GTT, 2-3 TIMES A WEEK
     Route: 061
  2. LATISSE [Suspect]
     Active Substance: BIMATOPROST
     Indication: GROWTH OF EYELASHES
     Dosage: 2 GTT, ONCE AT NIGHT
     Route: 061

REACTIONS (6)
  - Intentional product misuse [Unknown]
  - Inappropriate schedule of drug administration [Unknown]
  - Ocular hyperaemia [Recovered/Resolved]
  - Eye pruritus [Recovered/Resolved]
  - Drug hypersensitivity [Recovered/Resolved]
  - Product container issue [Unknown]
